FAERS Safety Report 13071525 (Version 4)
Quarter: 2017Q1

REPORT INFORMATION
  Report Type: Spontaneous
  Country: US (occurrence: US)
  Receive Date: 20161229
  Receipt Date: 20170306
  Transmission Date: 20170428
  Serious: No
  Sender: FDA-Public Use
  Company Number: US-PFIZER INC-2016596271

PATIENT
  Age: 78 Year
  Sex: Male
  Weight: 82 kg

DRUGS (6)
  1. METOPROLOL. [Concomitant]
     Active Substance: METOPROLOL
     Indication: CARDIAC DISORDER
     Dosage: 12.5 MG, 2X/DAY; 25MG HALF TABLET IN THE MORNING AND EVENING
  2. DIGOXIN. [Concomitant]
     Active Substance: DIGOXIN
     Indication: CARDIAC DISORDER
     Dosage: 125 UG, DAILY
  3. ELIQUIS [Concomitant]
     Active Substance: APIXABAN
     Indication: ANTICOAGULANT THERAPY
     Dosage: 2.5 MG, 2X/DAY
  4. AFINITOR [Concomitant]
     Active Substance: EVEROLIMUS
     Dosage: 5 MG, UNK
     Dates: end: 201611
  5. SUTENT [Suspect]
     Active Substance: SUNITINIB MALATE
     Indication: PANCREATIC NEUROENDOCRINE TUMOUR METASTATIC
     Dosage: 37.5 MG, 1X/DAY
     Dates: start: 20161128, end: 20161204
  6. LOSARTAN. [Concomitant]
     Active Substance: LOSARTAN
     Indication: CARDIAC DISORDER
     Dosage: 25 MG, DAILY

REACTIONS (3)
  - Yellow skin [Recovered/Resolved]
  - Hepatomegaly [Recovered/Resolved]
  - Perihepatic discomfort [Unknown]

NARRATIVE: CASE EVENT DATE: 20161203
